FAERS Safety Report 6084259-3 (Version None)
Quarter: 2009Q1

REPORT INFORMATION
  Report Type: 
  Country: None (occurrence: None)
  Receive Date: 20090219
  Receipt Date: 20090209
  Transmission Date: 20090719
  Serious: Yes (Other)
  Sender: FDA-Public Use
  Company Number: PHHY2009CA05226

PATIENT
  Sex: Male

DRUGS (10)
  1. RASILEZ [Suspect]
     Dosage: UNK
     Dates: start: 20080601
  2. BENYLIN DM                         /00048102/ [Concomitant]
     Indication: COUGH
  3. FLOMAX [Concomitant]
  4. NORVASC [Concomitant]
  5. SYNTHROID [Concomitant]
  6. VITAMIN B6 [Concomitant]
  7. FUROSEMIDE [Concomitant]
  8. ALLOPURINOL [Concomitant]
  9. PANTOLOC ^BYK GULDEN^ [Concomitant]
  10. SIMVASTATIN [Concomitant]

REACTIONS (5)
  - BLOOD PRESSURE DIASTOLIC DECREASED [None]
  - HYPERHIDROSIS [None]
  - HYPOGLYCAEMIA [None]
  - SEROTONIN SYNDROME [None]
  - TREMOR [None]
